FAERS Safety Report 11760771 (Version 2)
Quarter: 2017Q4

REPORT INFORMATION
  Report Type: Report from Study
  Country: GB (occurrence: GB)
  Receive Date: 20151120
  Receipt Date: 20171031
  Transmission Date: 20180320
  Serious: Yes (Death, Hospitalization)
  Sender: FDA-Public Use
  Company Number: GB-AMGEN-GBRNI2015123291

PATIENT
  Age: 69 Year
  Sex: Female

DRUGS (2)
  1. LEFLUNOMIDE. [Concomitant]
     Active Substance: LEFLUNOMIDE
     Dosage: UNK
  2. ETANERCEPT [Suspect]
     Active Substance: ETANERCEPT
     Indication: RHEUMATOID ARTHRITIS
     Dosage: UNK
     Route: 065
     Dates: start: 20040614, end: 20040815

REACTIONS (1)
  - Lung neoplasm malignant [Fatal]

NARRATIVE: CASE EVENT DATE: 20121011
